FAERS Safety Report 4440644-4 (Version None)
Quarter: 2004Q3

REPORT INFORMATION
  Report Type: 
  Country: None (occurrence: None)
  Receive Date: 20040903
  Receipt Date: 20040816
  Transmission Date: 20050211
  Serious: Yes (Other)
  Sender: FDA-Public Use
  Company Number: DE-AMGEN-US088040

PATIENT
  Sex: Male
  Weight: 65 kg

DRUGS (2)
  1. ENBREL [Suspect]
     Indication: POLYARTHRITIS
     Dates: start: 20040616, end: 20040715
  2. METHOTREXATE [Concomitant]
     Dates: start: 20030101, end: 20040715

REACTIONS (1)
  - THROMBOCYTOPENIA [None]
